FAERS Safety Report 20980672 (Version 1)
Quarter: 2022Q2

REPORT INFORMATION
  Report Type: Report from Study
  Country: BR (occurrence: BR)
  Receive Date: 20220620
  Receipt Date: 20220620
  Transmission Date: 20220720
  Serious: Yes (Hospitalization, Other)
  Sender: FDA-Public Use
  Company Number: BR-NOVARTISPH-NVSC2022BR100747

PATIENT
  Age: 77 Year
  Sex: Male
  Weight: 75 kg

DRUGS (3)
  1. COSENTYX [Suspect]
     Active Substance: SECUKINUMAB
     Indication: Psoriasis
     Dosage: 300 MG, QMO STARTED 5 MONTHS AGO, (ON THE LEG)
     Route: 065
  2. LEVOTHYROXINE [Concomitant]
     Active Substance: LEVOTHYROXINE
     Indication: Thyroid disorder
     Dosage: 1 DOSAGE FORM, QD (STARTED 8 YEARS AGO)
     Route: 048
  3. MIRABEGRON [Concomitant]
     Active Substance: MIRABEGRON
     Indication: Prostatic disorder
     Dosage: 1 DOSAGE FORM, QD
     Route: 048
     Dates: start: 20220526

REACTIONS (3)
  - COVID-19 [Recovering/Resolving]
  - Dengue fever [Recovered/Resolved]
  - Influenza [Recovering/Resolving]

NARRATIVE: CASE EVENT DATE: 20220201
